FAERS Safety Report 4692155-9 (Version None)
Quarter: 2005Q2

REPORT INFORMATION
  Report Type: 
  Country: None (occurrence: None)
  Receive Date: 20050614
  Receipt Date: 20050609
  Transmission Date: 20051028
  Serious: Yes (Hospitalization)
  Sender: FDA-Public Use
  Company Number: S05-USA-01918-01

PATIENT
  Age: 88 Year
  Sex: Female

DRUGS (7)
  1. NAMENDA [Suspect]
     Indication: DEMENTIA ALZHEIMER'S TYPE
     Dosage: 10 MG BID; PO
     Route: 048
     Dates: start: 20040201, end: 20050227
  2. NAMENDA [Suspect]
     Indication: DEMENTIA ALZHEIMER'S TYPE
     Dosage: 20 MG QD; PO
     Route: 048
     Dates: start: 20050409, end: 20050412
  3. NAMENDA [Suspect]
     Indication: DEMENTIA ALZHEIMER'S TYPE
     Dosage: 5 MG QD; PO
     Route: 048
     Dates: start: 20040201, end: 20040201
  4. NAMENDA [Suspect]
     Indication: DEMENTIA ALZHEIMER'S TYPE
     Dosage: 5 MG BID; PO
     Route: 048
     Dates: start: 20040201, end: 20040201
  5. NAMENDA [Suspect]
     Indication: DEMENTIA ALZHEIMER'S TYPE
     Dosage: 15 MG QD; PO
     Route: 048
     Dates: start: 20040201, end: 20040201
  6. NAMENDA [Suspect]
     Indication: DEMENTIA ALZHEIMER'S TYPE
     Dosage: 10 MG QD; PO
     Route: 048
     Dates: start: 20050404, end: 20050408
  7. NAMENDA [Suspect]
     Indication: DEMENTIA ALZHEIMER'S TYPE
     Dates: start: 20050101

REACTIONS (7)
  - CHEST PAIN [None]
  - HYPERHIDROSIS [None]
  - INAPPROPRIATE SCHEDULE OF DRUG ADMINISTRATION [None]
  - SOMNOLENCE [None]
  - SPEECH DISORDER [None]
  - VIRAL INFECTION [None]
  - VOMITING [None]
